FAERS Safety Report 15531171 (Version 1)
Quarter: 2018Q4

REPORT INFORMATION
  Report Type: Spontaneous
  Country: US (occurrence: US)
  Receive Date: 20181020
  Receipt Date: 20181020
  Transmission Date: 20190205
  Serious: No
  Sender: FDA-Public Use
  Company Number: US-JNJFOC-20180931631

PATIENT
  Age: 3 Decade
  Sex: Male

DRUGS (2)
  1. MENS ROGAINE EXTRA STRENGTH UNSCENTED [Suspect]
     Active Substance: MINOXIDIL
     Route: 061
  2. MENS ROGAINE EXTRA STRENGTH UNSCENTED [Suspect]
     Active Substance: MINOXIDIL
     Indication: ALOPECIA
     Dosage: 1/2 CAPFUL FROM JUN/JUL-2017
     Route: 061

REACTIONS (3)
  - Underdose [Unknown]
  - Product administered at inappropriate site [Unknown]
  - Inappropriate schedule of product administration [Unknown]
